FAERS Safety Report 10025539 (Version 1)
Quarter: 2014Q1

REPORT INFORMATION
  Report Type: Spontaneous
  Country: US (occurrence: None)
  Receive Date: 20140319
  Receipt Date: 20140319
  Transmission Date: 20141002
  Serious: Yes (Life-Threatening, Hospitalization)
  Sender: FDA-Public Use
  Company Number: None

PATIENT
  Age: 79 Year
  Sex: Male
  Weight: 66.2 kg

DRUGS (1)
  1. DIATRIZOATE SODIUM [Suspect]
     Route: 048
     Dates: start: 20140203, end: 20140203

REACTIONS (1)
  - Renal failure acute [None]
